FAERS Safety Report 9958692 (Version 1)
Quarter: 2014Q1

REPORT INFORMATION
  Report Type: Spontaneous
  Country: US (occurrence: None)
  Receive Date: 20140227
  Receipt Date: 20140227
  Transmission Date: 20141002
  Serious: Yes (Other)
  Sender: FDA-Public Use
  Company Number: 2014P1001479

PATIENT
  Sex: 0

DRUGS (3)
  1. FENTANYL [Suspect]
     Dates: start: 2014, end: 2014
  2. MIDAZOLAM [Suspect]
     Dates: start: 2014, end: 2014
  3. KETAMINE [Suspect]
     Dates: start: 2014, end: 2014

REACTIONS (1)
  - Respiratory arrest [None]
